FAERS Safety Report 20063129 (Version 2)
Quarter: 2021Q4

REPORT INFORMATION
  Report Type: Report from Study
  Country: TH (occurrence: TH)
  Receive Date: 20211112
  Receipt Date: 20211126
  Transmission Date: 20220303
  Serious: Yes (Hospitalization, Other)
  Sender: FDA-Public Use
  Company Number: TH-009507513-2106THA008013

PATIENT
  Age: 41 Year
  Sex: Male

DRUGS (4)
  1. PEMBROLIZUMAB [Suspect]
     Active Substance: PEMBROLIZUMAB
     Indication: Hodgkin^s disease
     Dosage: 200 MILLIGRAM, Q3W
     Route: 042
     Dates: start: 20210216, end: 20210511
  2. BISLOC [Concomitant]
     Indication: Tachycardia
     Dosage: 2.5 MG, 1 TABLET AFTER BREAKFAST
     Route: 048
  3. BISLOC [Concomitant]
     Indication: Arrhythmia
  4. TACROLIMUS [Concomitant]
     Active Substance: TACROLIMUS
     Indication: Immunosuppressant drug therapy
     Dosage: TACROLIMUS 1 MG 2 TABLETS EVERY 12 HOURS AT 7 A.M. AND 7 P.M.; Q12H
     Route: 048

REACTIONS (5)
  - Malignant neoplasm progression [Not Recovered/Not Resolved]
  - Lung neoplasm [Not Recovered/Not Resolved]
  - Diarrhoea [Recovered/Resolved]
  - Stem cell transplant [Recovering/Resolving]
  - Infection protozoal [Recovered/Resolved]

NARRATIVE: CASE EVENT DATE: 20210101
